FAERS Safety Report 10045946 (Version 2)
Quarter: 2014Q1

REPORT INFORMATION
  Report Type: Spontaneous
  Country: US (occurrence: US)
  Receive Date: 20140330
  Receipt Date: 20140330
  Transmission Date: 20141002
  Serious: Yes (Other)
  Sender: FDA-Public Use
  Company Number: US-GE HEALTHCARE MEDICAL DIAGNOSTICS-OSCN-PR-0902S-0089

PATIENT
  Age: 45 Year
  Sex: Female
  Weight: 132 kg

DRUGS (3)
  1. OMNISCAN [Suspect]
     Indication: PRODUCT USED FOR UNKNOWN INDICATION
     Dates: start: 20000816, end: 20000816
  2. MAGNEVIST [Suspect]
     Indication: SARCOIDOSIS
     Route: 042
     Dates: start: 20040823, end: 20040823
  3. FUROSEMIDE [Concomitant]

REACTIONS (1)
  - Nephrogenic systemic fibrosis [Not Recovered/Not Resolved]
